FAERS Safety Report 10543314 (Version 4)
Quarter: 2016Q1

REPORT INFORMATION
  Report Type: Report from Study
  Country: US (occurrence: US)
  Receive Date: 20141027
  Receipt Date: 20160108
  Transmission Date: 20160525
  Serious: No
  Sender: FDA-Public Use
  Company Number: US-ASTELLAS-2014US007230

PATIENT
  Age: 62 Year
  Sex: Female

DRUGS (6)
  1. NAPROXEN                           /00256202/ [Suspect]
     Active Substance: NAPROXEN SODIUM
     Indication: PRODUCT USED FOR UNKNOWN INDICATION
     Dosage: UNK, UNKNOWN FREQ.
     Route: 065
  2. FOLIC ACID. [Concomitant]
     Active Substance: FOLIC ACID
     Indication: PRODUCT USED FOR UNKNOWN INDICATION
     Dosage: UNK UNK, UNKNOWN FREQ.
     Route: 065
  3. ERLOTINIB [Suspect]
     Active Substance: ERLOTINIB
     Indication: LUNG NEOPLASM MALIGNANT
     Route: 065
     Dates: start: 20140516, end: 20140522
  4. ERLOTINIB [Suspect]
     Active Substance: ERLOTINIB
     Indication: BRAIN NEOPLASM MALIGNANT
     Route: 065
  5. ERLOTINIB [Suspect]
     Active Substance: ERLOTINIB
     Dosage: 75/100 MG, EVERY OTHER DAY
     Route: 065
     Dates: start: 20140702
  6. MULTIVITAMIN                       /07504101/ [Concomitant]
     Active Substance: VITAMINS
     Indication: PRODUCT USED FOR UNKNOWN INDICATION
     Dosage: UNK UNK, UNKNOWN FREQ.
     Route: 065

REACTIONS (12)
  - Pain [Recovering/Resolving]
  - Dysphagia [Unknown]
  - Gastrooesophageal reflux disease [Recovered/Resolved]
  - Oral pain [Unknown]
  - Speech disorder [Unknown]
  - Chest pain [Recovered/Resolved]
  - Oedema peripheral [Recovered/Resolved]
  - Oral mucosal erythema [Unknown]
  - Throat irritation [Unknown]
  - Diarrhoea [Recovered/Resolved]
  - Adrenal disorder [Unknown]
  - Skin exfoliation [Recovering/Resolving]

NARRATIVE: CASE EVENT DATE: 20140702
